FAERS Safety Report 16283948 (Version 1)
Quarter: 2019Q2

REPORT INFORMATION
  Report Type: Report from Study
  Country: US (occurrence: US)
  Receive Date: 20190507
  Receipt Date: 20190507
  Transmission Date: 20190711
  Serious: Yes (Other)
  Sender: FDA-Public Use
  Company Number: PHHO2017US014159

PATIENT
  Age: 38 Year
  Sex: Female
  Weight: 59.65 kg

DRUGS (3)
  1. KISQALI [Suspect]
     Active Substance: RIBOCICLIB
     Indication: TRIPLE NEGATIVE BREAST CANCER
     Dosage: 400 MG, DAY 1-21
     Route: 048
     Dates: start: 20170718, end: 20171002
  2. KISQALI [Suspect]
     Active Substance: RIBOCICLIB
     Dosage: 200 MG, DAY 1-21 OF 28 DAY CYCLE
     Route: 048
     Dates: start: 20171019
  3. BICALUTAMIDE. [Suspect]
     Active Substance: BICALUTAMIDE
     Indication: TRIPLE NEGATIVE BREAST CANCER
     Dosage: 150 MG, DAY 1-28
     Route: 048
     Dates: start: 20170718

REACTIONS (1)
  - Neutropenia [Recovered/Resolved]

NARRATIVE: CASE EVENT DATE: 20171006
